FAERS Safety Report 8560380-2 (Version None)
Quarter: 2012Q3

REPORT INFORMATION
  Report Type: 
  Country: None (occurrence: None)
  Receive Date: 20120802
  Receipt Date: 20120727
  Transmission Date: 20120928
  Serious: Yes (Other)
  Sender: FDA-Public Use
  Company Number: US-ROCHE-749656

PATIENT
  Sex: Female
  Weight: 52.2 kg

DRUGS (1)
  1. ACCUTANE [Suspect]
     Indication: ACNE
     Route: 065
     Dates: start: 19970101, end: 19971201

REACTIONS (16)
  - MATERNAL EXPOSURE DURING PREGNANCY [None]
  - ANGIOPATHY [None]
  - GASTROINTESTINAL INJURY [None]
  - INFLAMMATORY BOWEL DISEASE [None]
  - VARICOSE VEIN OPERATION [None]
  - FEMALE GENITAL TRACT FISTULA [None]
  - IRRITABLE BOWEL SYNDROME [None]
  - NAUSEA [None]
  - BLOOD TRIGLYCERIDES INCREASED [None]
  - CARDIAC DISORDER [None]
  - HAEMORRHOIDS [None]
  - CAESAREAN SECTION [None]
  - BLOOD CHOLESTEROL INCREASED [None]
  - HERNIA REPAIR [None]
  - CROHN'S DISEASE [None]
  - MUSCLE RUPTURE [None]
